FAERS Safety Report 17396610 (Version 1)
Quarter: 2020Q1

REPORT INFORMATION
  Report Type: Spontaneous
  Country: US (occurrence: US)
  Receive Date: 20200210
  Receipt Date: 20200210
  Transmission Date: 20200409
  Serious: No
  Sender: FDA-Public Use
  Company Number: US-PFIZER INC-2020058077

PATIENT

DRUGS (2)
  1. DILANTIN [Suspect]
     Active Substance: PHENYTOIN
     Dosage: 100 MG, UNK
  2. DILANTIN [Suspect]
     Active Substance: PHENYTOIN
     Dosage: 30 MG, UNK

REACTIONS (1)
  - Drug ineffective [Unknown]
